FAERS Safety Report 17146016 (Version 1)
Quarter: 2019Q4

REPORT INFORMATION
  Report Type: Spontaneous
  Country: US (occurrence: US)
  Receive Date: 20191212
  Receipt Date: 20191212
  Transmission Date: 20200122
  Serious: No
  Sender: FDA-Public Use
  Company Number: US-ASTRAZENECA-2019SF63681

PATIENT
  Sex: Female
  Weight: 74.4 kg

DRUGS (2)
  1. BYETTA [Suspect]
     Active Substance: EXENATIDE
     Indication: TYPE 2 DIABETES MELLITUS
     Dosage: 1.2ML UNKNOWN
     Route: 058
     Dates: start: 20191010
  2. METFORMIN [Concomitant]
     Active Substance: METFORMIN HYDROCHLORIDE

REACTIONS (9)
  - Vision blurred [Unknown]
  - Hunger [Unknown]
  - Headache [Unknown]
  - Dizziness [Unknown]
  - Mood altered [Unknown]
  - Incorrect dose administered [Unknown]
  - Vomiting [Unknown]
  - Tremor [Unknown]
  - Anxiety [Unknown]
